FAERS Safety Report 21158018 (Version 3)
Quarter: 2022Q3

REPORT INFORMATION
  Report Type: Report from Study
  Country: CH (occurrence: CH)
  Receive Date: 20220801
  Receipt Date: 20220902
  Transmission Date: 20221027
  Serious: Yes (Hospitalization)
  Sender: FDA-Public Use
  Company Number: CH-ABBVIE-22K-151-4487056-00

PATIENT
  Sex: Female

DRUGS (5)
  1. CARBIDOPA\LEVODOPA [Suspect]
     Active Substance: CARBIDOPA\LEVODOPA
     Indication: Parkinson^s disease
     Route: 050
     Dates: start: 20170321
  2. CARBIDOPA\LEVODOPA [Suspect]
     Active Substance: CARBIDOPA\LEVODOPA
     Dosage: MD: 3.5 ML, CRD: 4.5 ML/H, CRN: 2.8 ML/H, ED: 2.0 ML, 24H THERAPY
     Route: 050
     Dates: start: 20220123, end: 20220401
  3. CARBIDOPA\LEVODOPA [Suspect]
     Active Substance: CARBIDOPA\LEVODOPA
     Dosage: MD: 3.7 ML, CRD: 4.5 ML/H, CRN: 2.8 ML/H, ED: 2.0 ML,24H THERAPY
     Route: 050
     Dates: start: 20220401, end: 20220419
  4. CARBIDOPA\LEVODOPA [Suspect]
     Active Substance: CARBIDOPA\LEVODOPA
     Dosage: MD: 3.8 ML, CRD: 4.8 ML/H, CRN: 2.8 ML/H, ED: 2.0 ML,24H THERAPY
     Route: 050
     Dates: start: 20220419, end: 20220714
  5. CARBIDOPA\LEVODOPA [Suspect]
     Active Substance: CARBIDOPA\LEVODOPA
     Dosage: MD: 3.8 ML, CRD: 4.6 ML/H, CRN: 2.8 ML/H, ED: 2.0 ML,24H THERAPY
     Route: 050
     Dates: start: 20220714

REACTIONS (1)
  - Psychiatric decompensation [Not Recovered/Not Resolved]
